FAERS Safety Report 23293169 (Version 1)
Quarter: 2023Q4

REPORT INFORMATION
  Report Type: Spontaneous
  Country: IT (occurrence: IT)
  Receive Date: 20231213
  Receipt Date: 20231213
  Transmission Date: 20240109
  Serious: Yes (Other)
  Sender: FDA-Public Use
  Company Number: IT-PFM-2023-07012

PATIENT
  Age: 53 Year
  Sex: Male

DRUGS (2)
  1. BRAFTOVI [Suspect]
     Active Substance: ENCORAFENIB
     Indication: Metastatic malignant melanoma
     Dosage: 450 MG, DAILY
     Route: 065
     Dates: start: 20220719, end: 20231201
  2. MEKTOVI [Suspect]
     Active Substance: BINIMETINIB
     Indication: Metastatic malignant melanoma
     Dosage: 45 MG, BID (2/DAY)
     Route: 065
     Dates: start: 20220719, end: 20231201

REACTIONS (4)
  - Colitis [Unknown]
  - Gastrointestinal wall thickening [Unknown]
  - Lymphadenopathy [Unknown]
  - Ulcer [Unknown]

NARRATIVE: CASE EVENT DATE: 20221230
